FAERS Safety Report 5040912-1 (Version None)
Quarter: 2006Q2

REPORT INFORMATION
  Report Type: 
  Country: None (occurrence: None)
  Receive Date: 20060629
  Receipt Date: 20060629
  Transmission Date: 20061013
  Serious: Yes (Other)
  Sender: FDA-Public Use
  Company Number: None

PATIENT
  Sex: Female
  Weight: 91.6266 kg

DRUGS (1)
  1. CEFTRIAXONE [Suspect]
     Indication: MENINGITIS VIRAL
     Dosage: 2 GMS IV EVERY 12 HRS
     Route: 042
     Dates: start: 20060614, end: 20060617

REACTIONS (4)
  - NERVOUSNESS [None]
  - PARAESTHESIA [None]
  - PRURITUS [None]
  - RASH GENERALISED [None]
